FAERS Safety Report 6601075-1 (Version None)
Quarter: 2010Q1

REPORT INFORMATION
  Report Type: 
  Country: None (occurrence: None)
  Receive Date: 20100225
  Receipt Date: 20100217
  Transmission Date: 20100710
  Serious: Yes (Hospitalization)
  Sender: FDA-Public Use
  Company Number: US-JNJFOC-20100208877

PATIENT
  Sex: Female
  Weight: 93.9 kg

DRUGS (5)
  1. DURAGESIC-100 [Suspect]
     Indication: BACK PAIN
     Route: 062
  2. DURAGESIC-100 [Suspect]
     Route: 062
  3. MORPHINE [Suspect]
     Indication: PAIN
     Route: 048
  4. DILAUDID [Suspect]
     Indication: PAIN
     Route: 048
  5. HYDROCODONE [Concomitant]
     Indication: BREAKTHROUGH PAIN
     Dosage: DOSE: 10/500: 2 PILLS
     Route: 048

REACTIONS (10)
  - BACK DISORDER [None]
  - BLOOD CHOLESTEROL INCREASED [None]
  - BODY HEIGHT DECREASED [None]
  - BREAKTHROUGH PAIN [None]
  - CHILLS [None]
  - DEPRESSION [None]
  - DRUG INEFFECTIVE [None]
  - NAUSEA [None]
  - SPINAL COLUMN STENOSIS [None]
  - TREATMENT NONCOMPLIANCE [None]
